FAERS Safety Report 12287261 (Version 1)
Quarter: 2016Q2

REPORT INFORMATION
  Report Type: Spontaneous
  Country: US (occurrence: US)
  Receive Date: 20160420
  Receipt Date: 20160420
  Transmission Date: 20160815
  Serious: Yes (Other)
  Sender: FDA-Public Use
  Company Number: US-GILEAD-2016-0209487

PATIENT
  Age: 73 Year
  Sex: Female

DRUGS (1)
  1. AMBRISENTAN [Suspect]
     Active Substance: AMBRISENTAN
     Indication: PRODUCT USED FOR UNKNOWN INDICATION
     Dosage: UNK
     Route: 065
     Dates: start: 20160405

REACTIONS (12)
  - Decreased appetite [Unknown]
  - Fluid retention [Unknown]
  - Diarrhoea [Unknown]
  - Dyspnoea [Unknown]
  - Abdominal distension [Unknown]
  - Rash erythematous [Unknown]
  - Peripheral swelling [Unknown]
  - Swelling face [Unknown]
  - Dry mouth [Unknown]
  - Muscle spasms [Unknown]
  - Eye discharge [Unknown]
  - Nasal dryness [Unknown]
